FAERS Safety Report 16934927 (Version 2)
Quarter: 2020Q1

REPORT INFORMATION
  Report Type: Report from Study
  Country: DE (occurrence: DE)
  Receive Date: 20191018
  Receipt Date: 20200113
  Transmission Date: 20200409
  Serious: Yes (Other)
  Sender: FDA-Public Use
  Company Number: DE-EMD SERONO-9091442

PATIENT
  Age: 56 Year
  Sex: Female
  Weight: 71 kg

DRUGS (6)
  1. PROMETAZIN [Concomitant]
     Active Substance: PROMETHAZINE HYDROCHLORIDE
     Indication: BIPOLAR DISORDER
     Dates: start: 2014
  2. GANFORT [Concomitant]
     Active Substance: BIMATOPROST\TIMOLOL
     Indication: GLAUCOMA
  3. MAVENCLAD [Suspect]
     Active Substance: CLADRIBINE
     Dosage: SECOND WEEK THERAPY: THE PATIENT TOOK 2 TABLET DAILY ON DAY 1 AND 2 THEN 1 TABLET DAILY FROM DAY 3 T
     Route: 048
     Dates: start: 20190515, end: 20190519
  4. MAVENCLAD [Suspect]
     Active Substance: CLADRIBINE
     Indication: MULTIPLE SCLEROSIS
     Dosage: FIRST WEEK THERAPY: 6 TABLETS AS PER WEIGHT OF 71.2KG. THE PATIENT TOOK 2 TABLET ON DAY 1 AND THEN 1
     Route: 048
     Dates: start: 20190416, end: 20190420
  5. DOXEPIN [Concomitant]
     Active Substance: DOXEPIN
     Dosage: FREQUENCY: ONCE
  6. DOXEPIN [Concomitant]
     Active Substance: DOXEPIN
     Indication: BIPOLAR DISORDER
     Dosage: FREQUENCY: THREE TIMES?TAKING FROM 20 YEARS

REACTIONS (12)
  - Restlessness [Unknown]
  - Weight increased [Not Recovered/Not Resolved]
  - Panic attack [Unknown]
  - Lymphocyte count decreased [Unknown]
  - Listless [Unknown]
  - Hyperkinetic heart syndrome [Recovering/Resolving]
  - Bronchial hyperreactivity [Unknown]
  - Feeling cold [Unknown]
  - Vitreous opacities [Unknown]
  - Headache [Unknown]
  - Nasopharyngitis [Not Recovered/Not Resolved]
  - Dental cyst [Not Recovered/Not Resolved]

NARRATIVE: CASE EVENT DATE: 20190416
